FAERS Safety Report 24084507 (Version 4)
Quarter: 2024Q3

REPORT INFORMATION
  Report Type: Spontaneous
  Country: US (occurrence: US)
  Receive Date: 20240712
  Receipt Date: 20240821
  Transmission Date: 20241016
  Serious: No
  Sender: ROCHE
  Company Number: US-ROCHE-10000023410

PATIENT
  Sex: Female

DRUGS (2)
  1. ACTEMRA [Suspect]
     Active Substance: TOCILIZUMAB
     Indication: Rheumatoid arthritis
     Dosage: 162MG ACT PEN, IN THE THIGH, IN THE FAT
     Route: 058
     Dates: start: 20240628
  2. ACTEMRA [Suspect]
     Active Substance: TOCILIZUMAB
     Route: 058
     Dates: start: 202403, end: 202403

REACTIONS (8)
  - Device defective [Unknown]
  - Wrong technique in device usage process [Unknown]
  - Product lot number issue [Unknown]
  - Intentional product misuse [Unknown]
  - Product administration error [Unknown]
  - Wrong technique in device usage process [Unknown]
  - Product dose omission issue [Unknown]
  - No adverse event [Unknown]
